FAERS Safety Report 25873423 (Version 1)
Quarter: 2025Q4

REPORT INFORMATION
  Report Type: Spontaneous
  Country: US (occurrence: None)
  Receive Date: 20251001
  Receipt Date: 20251001
  Transmission Date: 20260117
  Serious: Yes (Hospitalization)
  Sender: FDA-CTU
  Company Number: None

PATIENT
  Age: 17 Year
  Sex: Female
  Weight: 56.25 kg

DRUGS (5)
  1. MONISTAT [Suspect]
     Active Substance: MICONAZOLE NITRATE
     Indication: Fungal infection
     Dosage: FREQUENCY : AS NEEDED;?
     Route: 067
  2. DULOXETINE [Concomitant]
     Active Substance: DULOXETINE
  3. PRAZOSIN [Concomitant]
     Active Substance: PRAZOSIN
  4. PROBIOTICS NOS [Concomitant]
     Active Substance: PROBIOTICS NOS
  5. VITAMIN C [Concomitant]
     Active Substance: ASCORBIC ACID

REACTIONS (3)
  - Rash [None]
  - Vaginal haemorrhage [None]
  - Vulvovaginal burning sensation [None]

NARRATIVE: CASE EVENT DATE: 20251001
